FAERS Safety Report 26060044 (Version 2)
Quarter: 2025Q4

REPORT INFORMATION
  Report Type: Spontaneous
  Country: US (occurrence: US)
  Receive Date: 20251118
  Receipt Date: 20251126
  Transmission Date: 20260117
  Serious: No
  Sender: ABBVIE
  Company Number: US-ABBVIE-6554419

PATIENT
  Age: 54 Year
  Sex: Female

DRUGS (1)
  1. RISANKIZUMAB [Suspect]
     Active Substance: RISANKIZUMAB
     Indication: Psoriasis
     Dosage: DOSAGE: 150 MG/ML
     Route: 058

REACTIONS (2)
  - Psoriasis [Unknown]
  - Product storage error [Unknown]

NARRATIVE: CASE EVENT DATE: 20251113
